FAERS Safety Report 4352517-6 (Version None)
Quarter: 2004Q2

REPORT INFORMATION
  Report Type: 
  Country: None (occurrence: None)
  Receive Date: 20040503
  Receipt Date: 20040503
  Transmission Date: 20050107
  Serious: Yes (Life-Threatening, Hospitalization)
  Sender: FDA-Public Use
  Company Number: None

PATIENT
  Age: 79 Year
  Sex: Male
  Weight: 70.3 kg

DRUGS (5)
  1. LISINOPRIL [Suspect]
     Indication: HYPERTENSION
     Dosage: 40MG PO QD
     Dates: start: 20040424, end: 20040426
  2. NORVASC [Concomitant]
  3. HYDRALAZINE HCL [Concomitant]
  4. NIPRIDE [Concomitant]
  5. LOPRESSOR [Concomitant]

REACTIONS (1)
  - ANGIONEUROTIC OEDEMA [None]
